FAERS Safety Report 6689674-2 (Version None)
Quarter: 2010Q2

REPORT INFORMATION
  Report Type: 
  Country: None (occurrence: None)
  Receive Date: 20100421
  Receipt Date: 20100414
  Transmission Date: 20101027
  Serious: No
  Sender: FDA-Public Use
  Company Number: 2010BI004157

PATIENT
  Age: 54 Year
  Sex: Female

DRUGS (4)
  1. TYSABRI [Suspect]
     Indication: MULTIPLE SCLEROSIS
     Route: 042
     Dates: start: 20090611, end: 20100128
  2. BETASERON [Concomitant]
     Indication: MULTIPLE SCLEROSIS
  3. CLARITIN [Concomitant]
     Indication: PREMEDICATION
     Dates: start: 20090611, end: 20100128
  4. TYLENOL-500 [Concomitant]
     Indication: PREMEDICATION
     Dates: start: 20090611, end: 20100128

REACTIONS (9)
  - ARTHROPOD BITE [None]
  - DRUG SPECIFIC ANTIBODY PRESENT [None]
  - FEELING HOT [None]
  - HYPERSENSITIVITY [None]
  - INFLUENZA [None]
  - INJECTION SITE HAEMATOMA [None]
  - PALPITATIONS [None]
  - PYREXIA [None]
  - SKIN DISCOLOURATION [None]
